FAERS Safety Report 6034615-4 (Version None)
Quarter: 2009Q1

REPORT INFORMATION
  Report Type: 
  Country: None (occurrence: None)
  Receive Date: 20090112
  Receipt Date: 20081229
  Transmission Date: 20090719
  Serious: Yes (Death)
  Sender: FDA-Public Use
  Company Number: CN-ROCHE-605206

PATIENT

DRUGS (7)
  1. TRETINOIN [Suspect]
     Dosage: ALONG WITH THREE COURSES OF CONSOLIDATION CHEMOTHERAPY.
     Route: 065
  2. TRETINOIN [Suspect]
     Dosage: MAINTENANCE THERAPY.
     Route: 065
  3. DAUNORUBICIN HCL [Suspect]
     Route: 065
  4. IDARUBICIN HCL [Suspect]
     Route: 065
  5. CYTARABINE [Suspect]
     Route: 065
  6. ACLARUBICIN [Suspect]
     Dosage: THREE COURSES OF CONSOLIDATION THERAPY.
     Route: 065
  7. ACLARUBICIN [Suspect]
     Dosage: MAINTENANCE THERAPY.
     Route: 065

REACTIONS (2)
  - DISSEMINATED INTRAVASCULAR COAGULATION [None]
  - HAEMORRHAGE INTRACRANIAL [None]
